FAERS Safety Report 9394082 (Version 1)
Quarter: 2013Q3

REPORT INFORMATION
  Report Type: Spontaneous
  Country: PH (occurrence: PH)
  Receive Date: 20130710
  Receipt Date: 20130710
  Transmission Date: 20140515
  Serious: Yes (Death, Hospitalization)
  Sender: FDA-Public Use
  Company Number: PH-BAXTER-2013BAX026286

PATIENT
  Sex: Female

DRUGS (1)
  1. DIANEAL PD2 WITH 1.5% DEXTROSE [Suspect]
     Indication: PERITONEAL DIALYSIS
     Route: 033
     Dates: start: 20130116, end: 20130529

REACTIONS (4)
  - Multi-organ failure [Fatal]
  - Cardiovascular disorder [Fatal]
  - Cerebrovascular accident [Fatal]
  - General physical health deterioration [Fatal]
